FAERS Safety Report 5545865-5 (Version None)
Quarter: 2007Q4

REPORT INFORMATION
  Report Type: 
  Country: None (occurrence: None)
  Receive Date: 20071211
  Receipt Date: 20070917
  Transmission Date: 20080405
  Serious: No
  Sender: FDA-Public Use
  Company Number: US-ASTRAZENECA-2007UW22042

PATIENT
  Age: 8 Year
  Sex: Female

DRUGS (7)
  1. SYMBICORT [Suspect]
     Indication: ASTHMA
     Dosage: 2-160/4.5 UG PUFFS BID
     Route: 055
  2. SYMBICORT [Suspect]
     Dosage: 1-160/4.5 UG PUFFS BID
     Route: 055
  3. PULMICORT FLEXHALER [Suspect]
     Indication: ASTHMA
     Dosage: 1 PUFF BID
     Route: 055
  4. PULMICORT [Suspect]
     Indication: ASTHMA
     Route: 055
  5. SINGULAIR [Concomitant]
  6. ZYRTEC [Concomitant]
  7. XOPENEX [Concomitant]

REACTIONS (2)
  - INSOMNIA [None]
  - TREMOR [None]
